FAERS Safety Report 5565841-6 (Version None)
Quarter: 2007Q4

REPORT INFORMATION
  Report Type: 
  Country: None (occurrence: None)
  Receive Date: 20071213
  Receipt Date: 20071211
  Transmission Date: 20080405
  Serious: Yes (Death)
  Sender: FDA-Public Use
  Company Number: SPV1-2007-05142

PATIENT
  Age: 59 Year
  Sex: Male

DRUGS (7)
  1. AGRYLIN [Suspect]
     Dosage: 4 MG DAILY, ORAL
     Route: 048
  2. ATENOLOL [Concomitant]
  3. ASPIRIN [Concomitant]
  4. HYDROCHLOROTHIAZIDE [Concomitant]
  5. LIPITOR [Concomitant]
  6. LISINOPRIL [Concomitant]
  7. NORVASC [Concomitant]

REACTIONS (1)
  - BILE DUCT CANCER [None]
